FAERS Safety Report 11606021 (Version 2)
Quarter: 2015Q4

REPORT INFORMATION
  Report Type: Spontaneous
  Country: JP (occurrence: JP)
  Receive Date: 20151007
  Receipt Date: 20151026
  Transmission Date: 20160304
  Serious: Yes (Life-Threatening, Hospitalization, Other)
  Sender: FDA-Public Use
  Company Number: JP-B.I. PHARMACEUTICALS,INC./RIDGEFIELD-2015-BI-54555YA

PATIENT
  Age: 70 Year
  Sex: Male
  Weight: 56 kg

DRUGS (15)
  1. ZOLPIDEM [Suspect]
     Active Substance: ZOLPIDEM\ZOLPIDEM TARTRATE
     Route: 048
     Dates: start: 20150901
  2. LENDORMIN [Suspect]
     Active Substance: BROTIZOLAM
     Indication: INSOMNIA
     Dosage: 0.5 MG
     Route: 048
     Dates: end: 20150814
  3. ALDACTONE [Suspect]
     Active Substance: SPIRONOLACTONE
     Indication: HYPERTENSION
     Dosage: 100 MG
     Route: 048
     Dates: end: 20150814
  4. ADALAT CRONO [Suspect]
     Active Substance: NIFEDIPINE
     Dosage: 20 MG
     Route: 048
     Dates: end: 20150814
  5. LUPRAC [Suspect]
     Active Substance: TORSEMIDE
     Indication: HYPERTENSION
     Dosage: 16 MG
     Route: 048
     Dates: end: 20150814
  6. ARTIST [Suspect]
     Active Substance: CARVEDILOL
     Indication: HYPERTENSION
     Dosage: 5 MG
     Route: 048
     Dates: end: 20150814
  7. NEXIUM [Concomitant]
     Active Substance: ESOMEPRAZOLE MAGNESIUM
     Indication: PRODUCT USED FOR UNKNOWN INDICATION
     Route: 065
     Dates: end: 20150814
  8. MICOMBI COMBINATION [Suspect]
     Active Substance: HYDROCHLOROTHIAZIDE\TELMISARTAN
     Indication: HYPERTENSION
     Dosage: 1 ANZ
     Route: 048
     Dates: start: 20150811, end: 20150814
  9. ADALAT CRONO [Suspect]
     Active Substance: NIFEDIPINE
     Indication: HYPERTENSION
     Dosage: 40 MG
     Route: 048
     Dates: end: 20150814
  10. ELIQUIS [Concomitant]
     Active Substance: APIXABAN
     Indication: PRODUCT USED FOR UNKNOWN INDICATION
     Route: 065
     Dates: end: 20150814
  11. ZOLPIDEM [Suspect]
     Active Substance: ZOLPIDEM\ZOLPIDEM TARTRATE
     Indication: INSOMNIA
     Dosage: 10 MG
     Route: 048
     Dates: end: 20150814
  12. HARNAL [Suspect]
     Active Substance: TAMSULOSIN HYDROCHLORIDE
     Indication: BENIGN PROSTATIC HYPERPLASIA
     Dosage: 0.2 MG
     Route: 048
     Dates: end: 20150814
  13. HARNAL [Suspect]
     Active Substance: TAMSULOSIN HYDROCHLORIDE
     Dosage: FORMULATION: ORODISPERSIBLE TABLET
     Route: 048
     Dates: start: 20150828
  14. RENIVACE [Suspect]
     Active Substance: ENALAPRIL
     Indication: HYPERTENSION
     Dosage: 5 MG
     Route: 048
     Dates: end: 20150814
  15. RASILEZ [Suspect]
     Active Substance: ALISKIREN
     Indication: HYPERTENSION
     Dosage: 150 MG
     Route: 048
     Dates: start: 20150714, end: 20150814

REACTIONS (6)
  - Hepatic function abnormal [Recovered/Resolved]
  - Shock [Recovered/Resolved]
  - Hypokalaemia [Recovered/Resolved]
  - Dizziness [Unknown]
  - Altered state of consciousness [Recovered/Resolved]
  - Blood creatine phosphokinase increased [Recovered/Resolved]

NARRATIVE: CASE EVENT DATE: 20150812
